FAERS Safety Report 21127995 (Version 1)
Quarter: 2022Q3

REPORT INFORMATION
  Report Type: Spontaneous
  Country: US (occurrence: US)
  Receive Date: 20220725
  Receipt Date: 20220725
  Transmission Date: 20221027
  Serious: No
  Sender: FDA-Public Use
  Company Number: US-ABBVIE-22K-163-4433916-00

PATIENT
  Sex: Female

DRUGS (1)
  1. LEVOTHYROXINE [Suspect]
     Active Substance: LEVOTHYROXINE
     Indication: Thyroid cancer
     Route: 048
     Dates: start: 1980

REACTIONS (4)
  - Cell-mediated immune deficiency [Unknown]
  - Fear [Unknown]
  - Frustration tolerance decreased [Unknown]
  - Adverse drug reaction [Unknown]
